FAERS Safety Report 19171728 (Version 1)
Quarter: 2021Q2

REPORT INFORMATION
  Report Type: Spontaneous
  Country: US (occurrence: US)
  Receive Date: 20210421
  Receipt Date: 20210421
  Transmission Date: 20210717
  Serious: Yes (Disabling, Other)
  Sender: FDA-Public Use
  Company Number: None

PATIENT
  Age: 74 Year
  Sex: Female
  Weight: 61.23 kg

DRUGS (9)
  1. FLONASE [Concomitant]
     Active Substance: FLUTICASONE PROPIONATE
  2. CENTRUYM SILVER [Concomitant]
  3. LEVOTHYROXINE. [Concomitant]
     Active Substance: LEVOTHYROXINE
  4. PRESER VISION [Concomitant]
  5. OSTEO BIFLEX [Concomitant]
     Active Substance: CHONDROITIN SULFATE A\GLUCOSAMINE
  6. TRELEGY ELLIPTA [Suspect]
     Active Substance: FLUTICASONE FUROATE\UMECLIDINIUM BROMIDE\VILANTEROL TRIFENATATE
     Indication: CHRONIC OBSTRUCTIVE PULMONARY DISEASE
     Dosage: ?          QUANTITY:1 PUFF BY MOUTH;?
     Route: 048
     Dates: start: 20210129, end: 20210220
  7. ASMANEX [Concomitant]
     Active Substance: MOMETASONE FUROATE
  8. POSTURE D CALCIUM [Concomitant]
  9. KRILL OIL [Concomitant]
     Active Substance: DIETARY SUPPLEMENT\KRILL OIL

REACTIONS (7)
  - Pneumonia [None]
  - Headache [None]
  - Arthralgia [None]
  - Cough [None]
  - Dysphonia [None]
  - Back pain [None]
  - Sinusitis [None]

NARRATIVE: CASE EVENT DATE: 20210217
